FAERS Safety Report 23052190 (Version 1)
Quarter: 2023Q4

REPORT INFORMATION
  Report Type: Spontaneous
  Country: US (occurrence: US)
  Receive Date: 20231010
  Receipt Date: 20231010
  Transmission Date: 20240110
  Serious: No
  Sender: FDA-Public Use
  Company Number: US-PRINSTON PHARMACEUTICAL INC.-2023PRN00345

PATIENT
  Sex: Female
  Weight: 47.619 kg

DRUGS (6)
  1. ESCITALOPRAM [Suspect]
     Active Substance: ESCITALOPRAM OXALATE
     Indication: Generalised anxiety disorder
     Dosage: 10-20 MG (USUALLY 10 MG), 1X/DAY
     Route: 048
     Dates: end: 20230609
  2. ESCITALOPRAM [Suspect]
     Active Substance: ESCITALOPRAM OXALATE
     Dosage: 10-20 MG (USUALLY 10 MG), 1X/DAY
     Route: 048
     Dates: start: 20230709, end: 202307
  3. ESCITALOPRAM [Suspect]
     Active Substance: ESCITALOPRAM OXALATE
     Dosage: 10-20 MG (USUALLY 10 MG), 1X/DAY
     Route: 048
     Dates: start: 202307
  4. LOESTRIN NOS [Concomitant]
     Active Substance: ETHINYL ESTRADIOL\NORETHINDRONE ACETATE
  5. UNSPECIFIED NON-STEROIDAL ANTI-INFLAMMATORY MEDICATIONS [Concomitant]
     Dosage: UNK, AS NEEDED
  6. MAXALT [Concomitant]
     Active Substance: RIZATRIPTAN BENZOATE
     Dosage: UNK, AS NEEDED

REACTIONS (9)
  - Feeling jittery [Recovered/Resolved]
  - Therapeutic product effect increased [Recovered/Resolved]
  - Menopause [Unknown]
  - Panic attack [Recovered/Resolved]
  - Tachycardia [Recovered/Resolved]
  - Depression [Recovered/Resolved]
  - Insomnia [Recovered/Resolved]
  - Suspected product quality issue [Not Recovered/Not Resolved]
  - Product quality issue [Recovered/Resolved]

NARRATIVE: CASE EVENT DATE: 20230101
